FAERS Safety Report 4311879-6 (Version None)
Quarter: 2004Q1

REPORT INFORMATION
  Report Type: 
  Country: None (occurrence: None)
  Receive Date: 20040302
  Receipt Date: 20040130
  Transmission Date: 20041129
  Serious: No
  Sender: FDA-Public Use
  Company Number: 200412104BWH

PATIENT
  Age: 52 Year
  Sex: Male

DRUGS (3)
  1. LEVITRA [Suspect]
     Indication: ERECTILE DYSFUNCTION
     Dosage: SEE IMAGE
     Route: 048
     Dates: start: 20031101
  2. VERAPAMIL [Concomitant]
  3. TOPROL-XL [Concomitant]

REACTIONS (2)
  - FLUSHING [None]
  - HEADACHE [None]
